FAERS Safety Report 24146475 (Version 3)
Quarter: 2025Q1

REPORT INFORMATION
  Report Type: Spontaneous
  Country: ES (occurrence: ES)
  Receive Date: 20240729
  Receipt Date: 20250214
  Transmission Date: 20250409
  Serious: Yes (Hospitalization, Other)
  Sender: AUROBINDO
  Company Number: ES-EMA-DD-20240717-7482701-093542

PATIENT
  Age: 8 Year
  Sex: Male

DRUGS (2)
  1. AMOXICILLIN [Suspect]
     Active Substance: AMOXICILLIN
     Indication: Pharyngitis
     Route: 065
  2. AMOXICILLIN [Suspect]
     Active Substance: AMOXICILLIN
     Indication: Tonsillitis

REACTIONS (4)
  - Human herpesvirus 6 infection reactivation [Unknown]
  - Human herpesvirus 6 infection [Unknown]
  - Skin reaction [Recovered/Resolved]
  - Weight increased [Unknown]
